FAERS Safety Report 10215234 (Version 1)
Quarter: 2014Q2

REPORT INFORMATION
  Report Type: Report from Study
  Country: US (occurrence: US)
  Receive Date: 20140603
  Receipt Date: 20140603
  Transmission Date: 20141212
  Serious: Yes (Other)
  Sender: FDA-Public Use
  Company Number: PHEH2014US011061

PATIENT
  Age: 69 Year
  Sex: Female
  Weight: 51.7 kg

DRUGS (1)
  1. AFINITOR [Suspect]
     Dosage: 5 MG, QD
     Route: 048
     Dates: start: 20140501

REACTIONS (3)
  - Asthma [Unknown]
  - Wheezing [Unknown]
  - Nasopharyngitis [Unknown]
